FAERS Safety Report 11789777 (Version 1)
Quarter: 2015Q4

REPORT INFORMATION
  Report Type: Spontaneous
  Country: FR (occurrence: FR)
  Receive Date: 20151201
  Receipt Date: 20151201
  Transmission Date: 20160305
  Serious: Yes (Other)
  Sender: FDA-Public Use
  Company Number: FR-TEVA-614714ISR

PATIENT
  Age: 75 Year
  Sex: Female

DRUGS (13)
  1. PREDNISONE. [Concomitant]
     Active Substance: PREDNISONE
     Dosage: 5 MILLIGRAM DAILY;
  2. SOFOSBUVIR [Suspect]
     Active Substance: SOFOSBUVIR
     Indication: ANTIVIRAL TREATMENT
  3. ETANERCEPT [Concomitant]
     Active Substance: ETANERCEPT
     Dosage: 50 MG/10 DAYS
  4. SPIRONOLACTONE. [Concomitant]
     Active Substance: SPIRONOLACTONE
     Dosage: 50 MILLIGRAM DAILY;
  5. BROMAZEPAM [Concomitant]
     Active Substance: BROMAZEPAM
     Dosage: 3 MILLIGRAM DAILY;
  6. AMIODARONE [Interacting]
     Active Substance: AMIODARONE
  7. OMEPRAZOLE. [Concomitant]
     Active Substance: OMEPRAZOLE
     Dosage: 20 MILLIGRAM DAILY;
  8. SOFOSBUVIR [Suspect]
     Active Substance: SOFOSBUVIR
     Indication: ANTIVIRAL TREATMENT
     Dosage: 400 MILLIGRAM DAILY;
  9. SIMEPREVIR [Interacting]
     Active Substance: SIMEPREVIR
     Indication: ANTIVIRAL TREATMENT
     Dosage: 150 MILLIGRAM DAILY;
  10. LEVOTHYROXINE. [Concomitant]
     Active Substance: LEVOTHYROXINE
     Dosage: 100 MICROGRAM DAILY;
  11. RIBAVIRIN. [Suspect]
     Active Substance: RIBAVIRIN
     Indication: ANTIVIRAL TREATMENT
     Dosage: 1000 MILLIGRAM DAILY;
  12. FLUINDIONE [Concomitant]
     Active Substance: FLUINDIONE
     Dosage: 10 MILLIGRAM DAILY;
  13. CHOLECALCIFEROL [Concomitant]
     Active Substance: CHOLECALCIFEROL
     Dosage: 400 IU (INTERNATIONAL UNIT) DAILY;

REACTIONS (4)
  - Drug interaction [Recovered/Resolved]
  - Syncope [Recovered/Resolved]
  - Sinus node dysfunction [Recovered/Resolved]
  - Sinus bradycardia [Recovered/Resolved]
